FAERS Safety Report 20423500 (Version 2)
Quarter: 2022Q1

REPORT INFORMATION
  Report Type: Spontaneous
  Country: FR (occurrence: FR)
  Receive Date: 20220203
  Receipt Date: 20220218
  Transmission Date: 20220423
  Serious: Yes (Death)
  Sender: FDA-Public Use
  Company Number: None

PATIENT
  Age: 56 Year
  Sex: Male
  Weight: 78 kg

DRUGS (2)
  1. GEMZAR [Suspect]
     Active Substance: GEMCITABINE HYDROCHLORIDE
     Indication: Meckel^s cave tumour
     Dosage: 1000 MG/M2, UNKNOWN
     Route: 042
     Dates: start: 20220119
  2. CARBOPLATIN [Suspect]
     Active Substance: CARBOPLATIN
     Indication: Meckel^s cave tumour
     Dosage: 370 MG, UNKNOWN
     Route: 042
     Dates: start: 20220119

REACTIONS (2)
  - Death [Fatal]
  - Off label use [Unknown]

NARRATIVE: CASE EVENT DATE: 20220121
